FAERS Safety Report 8279689 (Version 2)
Quarter: 2013Q2

REPORT INFORMATION
  Report Type: Spontaneous
  Country: JP (occurrence: JP)
  Receive Date: 20111208
  Receipt Date: 20130404
  Transmission Date: 20140414
  Serious: Yes (Life-Threatening)
  Sender: FDA-Public Use
  Company Number: JP-PFIZER INC-2011280096

PATIENT
  Age: 70 Year
  Sex: Male

DRUGS (18)
  1. LYRICA [Suspect]
     Indication: PAIN
     Dosage: 50 MG/DAY, 75MG/DAY SOMETINES AFTER DIALYSIS
     Route: 048
     Dates: start: 20110824, end: 20110912
  2. LYRICA [Suspect]
     Indication: NEURALGIA
     Dosage: UNK
     Route: 048
     Dates: start: 20111009, end: 20111104
  3. TRAMCET [Suspect]
     Indication: PAIN
     Dosage: 1 DF, 1X/DAY
     Route: 048
     Dates: start: 20110829, end: 20110920
  4. TRAMCET [Suspect]
     Dosage: 1 DF, 1X/DAY
     Route: 048
     Dates: start: 20110930, end: 20111104
  5. ONE-ALPHA [Concomitant]
     Dosage: UNK
  6. PARIET [Concomitant]
     Dosage: UNK
  7. BAYASPIRIN [Concomitant]
     Dosage: 100 MG, 1X/DAY
     Route: 048
  8. DIOVAN [Concomitant]
     Dosage: 80 MG, 1X/DAY
     Route: 048
  9. ALFAROL [Concomitant]
     Dosage: 0.25 UG, 2X/DAY
     Route: 048
  10. NORVASC [Concomitant]
     Dosage: 5 MG, 1X/DAY
     Route: 048
  11. LASIX [Concomitant]
     Dosage: 40 MG, 1X/DAY
     Route: 048
  12. SHAKUYAKU-KANZO-TO [Concomitant]
     Dosage: 2 G, 1X/DAY
     Route: 048
  13. ALESION [Concomitant]
     Dosage: 20 MG, 1X/DAY
     Route: 048
  14. CINACALCET HYDROCHLORIDE [Concomitant]
     Dosage: 25 MG, 1X/DAY
     Route: 048
  15. VOLTAREN [Concomitant]
     Dosage: 25 MG, AS NEEDED
     Route: 048
  16. NESP [Concomitant]
     Indication: ANAEMIA
     Dosage: 10 UG, WEEKLY
     Route: 042
  17. NEUROTROPIN [Concomitant]
     Indication: BACK PAIN
     Dosage: THREE TIMES A WEEK
  18. NORNICICAMIN [Concomitant]
     Indication: BACK PAIN
     Dosage: UNK

REACTIONS (3)
  - Pulmonary oedema [Recovering/Resolving]
  - Respiratory failure [Recovering/Resolving]
  - Wheezing [Unknown]
